FAERS Safety Report 12821041 (Version 2)
Quarter: 2018Q1

REPORT INFORMATION
  Report Type: Report from Study
  Country: US (occurrence: US)
  Receive Date: 20161007
  Receipt Date: 20180215
  Transmission Date: 20180508
  Serious: Yes (Hospitalization, Other)
  Sender: FDA-Public Use
  Company Number: US-ROCHE-1281977

PATIENT
  Age: 63 Year
  Sex: Female
  Weight: 62.7 kg

DRUGS (8)
  1. VELIPARIB [Suspect]
     Active Substance: VELIPARIB
     Indication: FALLOPIAN TUBE CANCER
  2. CISPLATIN. [Suspect]
     Active Substance: CISPLATIN
     Indication: FALLOPIAN TUBE CANCER
  3. PACLITAXEL. [Suspect]
     Active Substance: PACLITAXEL
     Indication: FALLOPIAN TUBE CANCER
     Dosage: IP DAY 8
     Route: 065
  4. BEVACIZUMAB. [Suspect]
     Active Substance: BEVACIZUMAB
     Indication: FALLOPIAN TUBE CANCER
  5. PACLITAXEL. [Suspect]
     Active Substance: PACLITAXEL
     Indication: OVARIAN EPITHELIAL CANCER
     Dosage: ON DAY 1, RECENT DOSE ON 07/AUG/2013
     Route: 042
     Dates: start: 20130618
  6. BEVACIZUMAB. [Suspect]
     Active Substance: BEVACIZUMAB
     Indication: OVARIAN EPITHELIAL CANCER
     Dosage: OVER 30-90 MINS. ON DAY 1, 21 DAY CYCLE, RECENT DOSE ON 09/SEP/2017
     Route: 042
     Dates: start: 20130618
  7. CISPLATIN. [Suspect]
     Active Substance: CISPLATIN
     Indication: OVARIAN EPITHELIAL CANCER
     Dosage: ROUTE: IP DAY 1 OR 2, RECENT DOSE ON 31/JUL/2013
     Route: 065
     Dates: start: 20130618
  8. VELIPARIB [Suspect]
     Active Substance: VELIPARIB
     Indication: OVARIAN EPITHELIAL CANCER
     Dosage: ON DAYS -2-5, 21 DAY CYCLE, RECENT DOSE ON 12/AUG/2013
     Route: 048
     Dates: start: 20130618

REACTIONS (9)
  - Sepsis [Unknown]
  - Sepsis [Unknown]
  - Urinary tract obstruction [Unknown]
  - Hypokalaemia [Unknown]
  - Hyperglycaemia [Unknown]
  - Anaemia [Unknown]
  - Embolism [Unknown]
  - Urinary tract obstruction [Unknown]
  - Anaemia [Unknown]

NARRATIVE: CASE EVENT DATE: 20130808
